FAERS Safety Report 6295008-8 (Version None)
Quarter: 2009Q3

REPORT INFORMATION
  Report Type: 
  Country: None (occurrence: None)
  Receive Date: 20090803
  Receipt Date: 20090728
  Transmission Date: 20100115
  Serious: Yes (Death)
  Sender: FDA-Public Use
  Company Number: JP-ASTRAZENECA-2009SE02284

PATIENT
  Age: 10 Month
  Sex: Male

DRUGS (40)
  1. MEROPEN [Suspect]
     Indication: MENINGITIS HAEMOPHILUS
     Route: 042
     Dates: start: 20081201, end: 20081205
  2. MEROPEN [Suspect]
     Indication: MENINGITIS
     Route: 042
     Dates: start: 20081201, end: 20081205
  3. ROCEPHIN [Suspect]
     Indication: MENINGITIS
     Route: 042
     Dates: start: 20081201, end: 20081208
  4. ROCEPHIN [Suspect]
     Indication: MENINGITIS HAEMOPHILUS
     Route: 042
     Dates: start: 20081201, end: 20081208
  5. CLAFORAN [Suspect]
     Indication: MENINGITIS
     Dates: start: 20081201, end: 20081220
  6. CLAFORAN [Suspect]
     Indication: MENINGITIS HAEMOPHILUS
     Dates: start: 20081201, end: 20081220
  7. MIRACLID [Concomitant]
     Indication: MENINGITIS
     Dates: start: 20081201, end: 20081223
  8. MIRACLID [Concomitant]
     Indication: DISSEMINATED INTRAVASCULAR COAGULATION
     Dates: start: 20081201, end: 20081223
  9. FAMOSTAGINE [Concomitant]
     Indication: MENINGITIS
     Dates: start: 20081201, end: 20081205
  10. FAMOSTAGINE [Concomitant]
     Indication: DISSEMINATED INTRAVASCULAR COAGULATION
     Dates: start: 20081201, end: 20081205
  11. FAMOSTAGINE [Concomitant]
     Dates: start: 20081224, end: 20081227
  12. FAMOSTAGINE [Concomitant]
     Dates: start: 20081224, end: 20081227
  13. STEROID [Concomitant]
     Indication: MENINGITIS
     Dates: start: 20090108, end: 20090110
  14. SANDOGLOBULIN [Concomitant]
     Indication: BACTERIAL INFECTION
     Dates: start: 20081201, end: 20081205
  15. THIOPENTAL SODIUM [Concomitant]
     Indication: CONVULSION
     Dates: start: 20081201, end: 20081201
  16. MUCODYNE [Concomitant]
     Indication: UPPER RESPIRATORY TRACT INFLAMMATION
     Dates: start: 20081201, end: 20081228
  17. MUCOSOLVAN SYRUP [Concomitant]
     Indication: UPPER RESPIRATORY TRACT INFLAMMATION
     Dates: start: 20081201, end: 20081228
  18. MEDICON [Concomitant]
     Indication: UPPER RESPIRATORY TRACT INFLAMMATION
     Dates: start: 20081201, end: 20081228
  19. TRICLORYL [Concomitant]
     Indication: MENINGITIS HAEMOPHILUS
     Dates: start: 20081204, end: 20081204
  20. TRICLORYL [Concomitant]
     Dates: start: 20081206, end: 20081206
  21. TRICLORYL [Concomitant]
     Dates: start: 20081210, end: 20081211
  22. TRICLORYL [Concomitant]
     Dates: start: 20081216, end: 20081216
  23. PROHANCE [Concomitant]
     Indication: SCAN WITH CONTRAST
     Dates: start: 20081204, end: 20081204
  24. PROHANCE [Concomitant]
     Dates: start: 20081220, end: 20081220
  25. ANHIBA [Concomitant]
     Indication: MENINGITIS HAEMOPHILUS
     Dates: start: 20081208, end: 20081208
  26. ANHIBA [Concomitant]
     Dates: start: 20081216, end: 20081216
  27. BIOFERMIN R [Concomitant]
     Indication: GASTROENTERITIS
     Route: 048
     Dates: start: 20081211, end: 20081222
  28. DORMICUM [Concomitant]
     Indication: SEDATION
     Dates: start: 20081224, end: 20081224
  29. ESCRE [Concomitant]
     Indication: SEDATION
     Dates: start: 20081216, end: 20081216
  30. ESCRE [Concomitant]
     Dates: start: 20081220, end: 20081220
  31. ATARAX [Concomitant]
     Indication: SEDATION
     Dates: start: 20081220, end: 20081220
  32. FLUMARIN [Concomitant]
     Indication: BACTERIAL INFECTION
     Dates: start: 20081222, end: 20081223
  33. MEPTIN [Concomitant]
     Indication: BRONCHITIS
     Dates: start: 20081222, end: 20081223
  34. INTAL [Concomitant]
     Indication: BRONCHITIS
     Dates: start: 20081222, end: 20081223
  35. NI [Concomitant]
     Indication: HYPERCOAGULATION
     Dates: start: 20081224, end: 20081227
  36. GASTER [Concomitant]
     Indication: GASTROENTERITIS
     Route: 048
     Dates: start: 20081227, end: 20081227
  37. LIVOSTIN [Concomitant]
     Indication: UPPER RESPIRATORY TRACT INFECTION
     Dates: start: 20081231, end: 20081231
  38. BICPHENIN [Concomitant]
     Indication: BACTERIAL INFECTION
     Dates: start: 20090101, end: 20090101
  39. DECADRON [Concomitant]
     Indication: BACTERIAL INFECTION
     Dates: start: 20081201, end: 20081204
  40. DIAZEPAM [Concomitant]
     Indication: BACTERIAL INFECTION
     Dates: start: 20081201, end: 20081201

REACTIONS (1)
  - DRUG RASH WITH EOSINOPHILIA AND SYSTEMIC SYMPTOMS [None]
